FAERS Safety Report 21219673 (Version 1)
Quarter: 2022Q3

REPORT INFORMATION
  Report Type: Spontaneous
  Country: CZ (occurrence: CZ)
  Receive Date: 20220817
  Receipt Date: 20220817
  Transmission Date: 20221027
  Serious: Yes (Other)
  Sender: FDA-Public Use
  Company Number: CZ-MLMSERVICE-20220509-3548757-1

PATIENT
  Age: 69 Year
  Sex: Male

DRUGS (6)
  1. OLANZAPINE [Suspect]
     Active Substance: OLANZAPINE
     Indication: Manic symptom
     Dosage: 5 MILLIGRAM, ONCE A DAY,5?10 MG/D
     Route: 065
     Dates: start: 202008
  2. OLANZAPINE [Suspect]
     Active Substance: OLANZAPINE
     Dosage: 10 MILLIGRAM, ONCE A DAY,5?10 MG/D
     Route: 065
     Dates: start: 202008
  3. LITHIUM [Concomitant]
     Active Substance: LITHIUM
     Indication: Bipolar disorder
     Dosage: 1200 MILLIGRAM, ONCE A DAY (HE HAS BEEN TAKING LITHIUM AT 1,050?1,200 MG A DAY FOR YEARS, BUT VARIAB
     Route: 065
  4. LITHIUM [Concomitant]
     Active Substance: LITHIUM
     Dosage: 1050 MILLIGRAM (HE HAS BEEN TAKING LITHIUM AT 1,050?1,200 MG A DAY FOR YEARS, BUT VARIABLY, OCCASION
     Route: 065
  5. LITHIUM [Concomitant]
     Active Substance: LITHIUM
     Dosage: UNK,HE HAS BEEN USING LITHIUM SINCE 1976
     Route: 065
     Dates: start: 1976
  6. LITHIUM [Concomitant]
     Active Substance: LITHIUM
     Dosage: UNK UNK, ONCE A DAY,1050-1200MG , DAILY
     Route: 065
     Dates: start: 202008

REACTIONS (2)
  - Sedation [Recovered/Resolved]
  - Stupor [Recovered/Resolved]

NARRATIVE: CASE EVENT DATE: 20200801
